FAERS Safety Report 20049048 (Version 1)
Quarter: 2021Q4

REPORT INFORMATION
  Report Type: Spontaneous
  Country: CZ (occurrence: CZ)
  Receive Date: 20211109
  Receipt Date: 20211109
  Transmission Date: 20220303
  Serious: Yes (Hospitalization, Other)
  Sender: FDA-Public Use
  Company Number: CZ-PFIZER INC-202101487551

PATIENT
  Sex: Male

DRUGS (7)
  1. RITUXIMAB [Suspect]
     Active Substance: RITUXIMAB
     Indication: Blastic plasmacytoid dendritic cell neoplasia
     Dosage: 8X R-CHOEP
  2. DOXORUBICIN HYDROCHLORIDE [Suspect]
     Active Substance: DOXORUBICIN HYDROCHLORIDE
     Indication: Blastic plasmacytoid dendritic cell neoplasia
     Dosage: 8X R-CHOEP
  3. CYCLOPHOSPHAMIDE [Suspect]
     Active Substance: CYCLOPHOSPHAMIDE
     Indication: Blastic plasmacytoid dendritic cell neoplasia
     Dosage: 8X R-CHOEP
  4. PREDNISONE [Suspect]
     Active Substance: PREDNISONE
     Indication: Blastic plasmacytoid dendritic cell neoplasia
     Dosage: PREPHASE WITH CORTICOIDS WAS INITIATED WITH PREDNISONE AT 100 MG PER DAY FOR FIVE DAYS
  5. PREDNISONE [Suspect]
     Active Substance: PREDNISONE
     Dosage: 8X R-CHOEP
  6. VINCRISTINE [Suspect]
     Active Substance: VINCRISTINE
     Indication: Blastic plasmacytoid dendritic cell neoplasia
     Dosage: 8X R-CHOEP
  7. ETOPOSIDE [Suspect]
     Active Substance: ETOPOSIDE
     Indication: Blastic plasmacytoid dendritic cell neoplasia
     Dosage: 8X R-CHOEP

REACTIONS (8)
  - Febrile neutropenia [Unknown]
  - Pneumonia [Unknown]
  - Thrombocytopenia [Unknown]
  - Neutropenia [Unknown]
  - Optic ischaemic neuropathy [Unknown]
  - Haemorrhoidal haemorrhage [Unknown]
  - Anaemia [Unknown]
  - Giant cell arteritis [Unknown]
